FAERS Safety Report 4433193-0 (Version None)
Quarter: 2004Q3

REPORT INFORMATION
  Report Type: 
  Country: None (occurrence: None)
  Receive Date: 20040823
  Receipt Date: 20040805
  Transmission Date: 20050211
  Serious: Yes (Other)
  Sender: FDA-Public Use
  Company Number: 2004RL000087

PATIENT
  Age: 72 Year
  Sex: Male

DRUGS (1)
  1. DYNACIRC CR [Suspect]
     Indication: HYPERTENSION
     Dosage: 5 MG; QD; PO
     Route: 048
     Dates: start: 20040801, end: 20040801

REACTIONS (1)
  - ANGIONEUROTIC OEDEMA [None]
